FAERS Safety Report 6025062-X (Version None)
Quarter: 2008Q4

REPORT INFORMATION
  Report Type: 
  Country: None (occurrence: None)
  Receive Date: 20081224
  Receipt Date: 20081211
  Transmission Date: 20090506
  Serious: Yes (Hospitalization)
  Sender: FDA-Public Use
  Company Number: SP-2006-002801

PATIENT
  Age: 52 Year
  Sex: Male
  Weight: 127 kg

DRUGS (5)
  1. OLMESARTAN MEDOXOMIL [Suspect]
     Indication: PROPHYLAXIS
     Dosage: 40 MG (40 MG, 1 IN 1 D), PER ORAL
     Route: 048
     Dates: start: 20060216, end: 20060314
  2. METFORMIN HYDROCHLORIDE [Concomitant]
  3. GLYBURIDE [Concomitant]
  4. INDAPAMIDE [Concomitant]
  5. ATENOLOL     (ATENOLOL) (100 MILLIGRAM, TABLET) (ATENOLOL) [Concomitant]

REACTIONS (13)
  - ACUTE PULMONARY OEDEMA [None]
  - BLOOD PRESSURE INCREASED [None]
  - CARDIOMYOPATHY [None]
  - CELL DEATH [None]
  - CYTOLYTIC HEPATITIS [None]
  - DILATATION VENTRICULAR [None]
  - HEART RATE INCREASED [None]
  - HEPATOMEGALY [None]
  - LEFT VENTRICULAR FAILURE [None]
  - MICROALBUMINURIA [None]
  - REGURGITATION [None]
  - THROMBOCYTOPENIA [None]
  - VENTRICULAR EXTRASYSTOLES [None]
